FAERS Safety Report 7656734-9 (Version None)
Quarter: 2011Q3

REPORT INFORMATION
  Report Type: 
  Country: None (occurrence: None)
  Receive Date: 20110804
  Receipt Date: 20110727
  Transmission Date: 20111222
  Serious: Yes (Hospitalization, Other)
  Sender: FDA-Public Use
  Company Number: JP-CEPHALON-2011004053

PATIENT
  Sex: Male
  Weight: 77 kg

DRUGS (8)
  1. DILTIAZEM HCL [Concomitant]
  2. LAFUTIDINE [Concomitant]
  3. BENDAMUSTINE HCL [Suspect]
     Route: 042
     Dates: start: 20110414, end: 20110415
  4. ALLOPURINOL [Concomitant]
  5. SULFAMETHOXAZOLE AND TRIMETHOPRIM [Concomitant]
  6. BENDAMUSTINE HCL [Suspect]
     Route: 042
     Dates: start: 20110322, end: 20110323
  7. BENDAMUSTINE HCL [Suspect]
     Indication: MANTLE CELL LYMPHOMA
     Route: 042
     Dates: start: 20110301, end: 20110302
  8. MAGNESIUM OXIDE [Concomitant]

REACTIONS (6)
  - PLATELET COUNT DECREASED [None]
  - NAUSEA [None]
  - NEUTROPHIL COUNT DECREASED [None]
  - RENAL IMPAIRMENT [None]
  - C-REACTIVE PROTEIN INCREASED [None]
  - PYREXIA [None]
